FAERS Safety Report 25144777 (Version 1)
Quarter: 2025Q2

REPORT INFORMATION
  Report Type: Spontaneous
  Country: US (occurrence: None)
  Receive Date: 20250331
  Receipt Date: 20250331
  Transmission Date: 20250717
  Serious: Yes (Hospitalization)
  Sender: FDA-CTU
  Company Number: None

PATIENT
  Age: 82 Year
  Sex: Male
  Weight: 69.3 kg

DRUGS (16)
  1. METHOCARBAMOL [Suspect]
     Active Substance: METHOCARBAMOL
     Indication: Back pain
     Dosage: 3 TIMES A DAY ORAL
     Route: 048
     Dates: start: 20250328, end: 20250328
  2. LIPITOR [Concomitant]
     Active Substance: ATORVASTATIN CALCIUM
  3. LOSARTAN [Concomitant]
     Active Substance: LOSARTAN
  4. Niacin ER 500mg [Concomitant]
  5. 81mg aspirin [Concomitant]
  6. LEXAPRO [Concomitant]
     Active Substance: ESCITALOPRAM OXALATE
  7. CIALIS [Concomitant]
     Active Substance: TADALAFIL
  8. IBUPROFEN [Concomitant]
     Active Substance: IBUPROFEN
  9. Zygerx [Concomitant]
  10. multi vit, [Concomitant]
  11. HERBALS\SAW PALMETTO [Concomitant]
     Active Substance: HERBALS\SAW PALMETTO
  12. VITAMIN C [Concomitant]
     Active Substance: ASCORBIC ACID
  13. COENZYME Q10 [Concomitant]
     Active Substance: DIETARY SUPPLEMENT\UBIDECARENONE
  14. BIOTIN [Concomitant]
     Active Substance: BIOTIN
  15. mag [Concomitant]
  16. ZINC [Concomitant]
     Active Substance: ZINC

REACTIONS (5)
  - Nausea [None]
  - Vomiting [None]
  - Dizziness [None]
  - Dehydration [None]
  - Blood pressure increased [None]

NARRATIVE: CASE EVENT DATE: 20250328
